FAERS Safety Report 8211214-7 (Version None)
Quarter: 2012Q1

REPORT INFORMATION
  Report Type: 
  Country: None (occurrence: None)
  Receive Date: 20120315
  Receipt Date: 20120312
  Transmission Date: 20120608
  Serious: Yes (Hospitalization)
  Sender: FDA-Public Use
  Company Number: BR-B.I. PHARMACEUTICALS,INC./RIDGEFIELD-2012-BR-00224BR

PATIENT
  Sex: Female

DRUGS (2)
  1. MICARDIS HCT [Suspect]
     Indication: BLOOD PRESSURE INCREASED
     Route: 048
     Dates: start: 20111101
  2. LERCANIDIPINE [Concomitant]
     Indication: BLOOD PRESSURE INCREASED

REACTIONS (3)
  - LIVER DISORDER [None]
  - CHEST PAIN [None]
  - ABDOMINAL DISTENSION [None]
